FAERS Safety Report 10617210 (Version 1)
Quarter: 2014Q4

REPORT INFORMATION
  Report Type: Report from Study
  Country: US (occurrence: US)
  Receive Date: 20141201
  Receipt Date: 20141201
  Transmission Date: 20150529
  Serious: Yes (Other)
  Sender: FDA-Public Use
  Company Number: US-SA-2014SA161863

PATIENT
  Sex: Female

DRUGS (1)
  1. LANTUS [Suspect]
     Active Substance: INSULIN GLARGINE
     Route: 065

REACTIONS (4)
  - Neoplasm malignant [Unknown]
  - Clostridium difficile infection [Unknown]
  - Crohn^s disease [Unknown]
  - Asthma [Unknown]
